FAERS Safety Report 21273824 (Version 2)
Quarter: 2022Q3

REPORT INFORMATION
  Report Type: Spontaneous
  Country: US (occurrence: US)
  Receive Date: 20220831
  Receipt Date: 20220901
  Transmission Date: 20221026
  Serious: No
  Sender: FDA-Public Use
  Company Number: US-PFIZER INC-202201104085

PATIENT
  Age: 60 Year
  Sex: Female
  Weight: 72.57 kg

DRUGS (10)
  1. PAXLOVID [Interacting]
     Active Substance: NIRMATRELVIR\RITONAVIR
     Indication: COVID-19 treatment
     Dosage: 3 DF, 2X/DAY (3 PILLS IN THE MORNING AND 3 PILLS AT NIGHT)
     Dates: start: 20220823, end: 20220829
  2. DILTIAZEM [Interacting]
     Active Substance: DILTIAZEM
     Indication: Blood pressure abnormal
     Dosage: 240 MG
  3. FLONASE [Suspect]
     Active Substance: FLUTICASONE PROPIONATE
     Dosage: UNK
  4. KLONOPIN [Interacting]
     Active Substance: CLONAZEPAM
     Dosage: UNK
  5. TRAZODONE [Interacting]
     Active Substance: TRAZODONE HYDROCHLORIDE
     Indication: Sleep disorder
     Dosage: UNK
  6. DEXAMETHASONE [Concomitant]
     Active Substance: DEXAMETHASONE
     Indication: Infection prophylaxis
     Dosage: 0.5 MG (1/2 OF A 1 MG PILL)
  7. AZITHROMYCIN [Concomitant]
     Active Substance: AZITHROMYCIN
     Indication: Infection prophylaxis
     Dosage: 500 MG, 1X/DAY (FOR 5 DAYS)
  8. DUONEB [Concomitant]
     Active Substance: ALBUTEROL SULFATE\IPRATROPIUM BROMIDE
     Indication: Respiration abnormal
  9. OXYGEN [Concomitant]
     Active Substance: OXYGEN
     Indication: Respiration abnormal
     Dosage: 3 L, AS NEEDED
  10. OXYGEN [Concomitant]
     Active Substance: OXYGEN
     Indication: Asthma

REACTIONS (8)
  - Drug interaction [Recovering/Resolving]
  - Dysgeusia [Recovering/Resolving]
  - Abdominal discomfort [Recovering/Resolving]
  - Headache [Recovering/Resolving]
  - Lethargy [Not Recovered/Not Resolved]
  - Pain [Not Recovered/Not Resolved]
  - Feeling abnormal [Not Recovered/Not Resolved]
  - Illness [Unknown]
